FAERS Safety Report 18896201 (Version 1)
Quarter: 2021Q1

REPORT INFORMATION
  Report Type: Report from Study
  Country: None (occurrence: CA)
  Receive Date: 20210216
  Receipt Date: 20210216
  Transmission Date: 20210420
  Serious: Yes (Hospitalization, Other)
  Sender: FDA-Public Use
  Company Number: CA-ABBVIE-21K-028-3720213-00

PATIENT
  Age: 73 Year
  Sex: Female
  Weight: 70.37 kg

DRUGS (11)
  1. HUMIRA [Suspect]
     Active Substance: ADALIMUMAB
     Indication: RHEUMATOID ARTHRITIS
     Route: 058
  2. APIXABAN [Concomitant]
     Active Substance: APIXABAN
     Indication: ATRIAL FIBRILLATION
     Route: 048
     Dates: start: 2015
  3. AMLODIPINE [Concomitant]
     Active Substance: AMLODIPINE BESYLATE
     Indication: HYPERTENSION
     Route: 048
  4. SULFOSALICYLIC ACID [Concomitant]
     Active Substance: SULFOSALICYLIC ACID
     Indication: RHEUMATOID ARTHRITIS
     Route: 048
  5. PLAQUENIL [Concomitant]
     Active Substance: HYDROXYCHLOROQUINE SULFATE
     Indication: RHEUMATOID ARTHRITIS
     Route: 048
  6. PREDNISONE. [Concomitant]
     Active Substance: PREDNISONE
     Indication: RHEUMATOID ARTHRITIS
     Route: 048
  7. RISEDRONATE [Concomitant]
     Active Substance: RISEDRONATE SODIUM
     Indication: OSTEOPOROSIS
     Route: 048
  8. BISOPROLOL [Concomitant]
     Active Substance: BISOPROLOL
     Indication: ATRIAL FIBRILLATION
     Route: 048
     Dates: start: 2015
  9. HUMIRA [Suspect]
     Active Substance: ADALIMUMAB
     Route: 058
     Dates: start: 20200930, end: 20210102
  10. PANTOPRAZOLE [Concomitant]
     Active Substance: PANTOPRAZOLE
     Indication: PROPHYLAXIS
     Route: 048
  11. NICKEL [Concomitant]
     Active Substance: NICKEL
     Indication: PRODUCT USED FOR UNKNOWN INDICATION

REACTIONS (9)
  - Sinus tachycardia [Recovering/Resolving]
  - Supraventricular tachycardia [Recovering/Resolving]
  - Chest discomfort [Recovering/Resolving]
  - Atrial fibrillation [Unknown]
  - Supraventricular extrasystoles [Recovering/Resolving]
  - Drug ineffective [Not Recovered/Not Resolved]
  - Atrioventricular block first degree [Recovering/Resolving]
  - Foot deformity [Not Recovered/Not Resolved]
  - Ventricular extrasystoles [Recovering/Resolving]

NARRATIVE: CASE EVENT DATE: 2020
